FAERS Safety Report 5334217-9 (Version None)
Quarter: 2007Q2

REPORT INFORMATION
  Report Type: 
  Country: None (occurrence: None)
  Receive Date: 20070525
  Receipt Date: 20070129
  Transmission Date: 20071010
  Serious: No
  Sender: FDA-Public Use
  Company Number: A0637429A

PATIENT
  Age: 17 Day
  Sex: Female

DRUGS (5)
  1. BACTROBAN [Suspect]
     Indication: DRUG USE FOR UNKNOWN INDICATION
     Dosage: 1APP PER DAY
     Route: 061
     Dates: start: 20070127
  2. TYLENOL [Concomitant]
  3. VANCOMYCIN [Concomitant]
  4. AMPICILLIN [Concomitant]
  5. CEFOTAXIME [Concomitant]

REACTIONS (2)
  - INCORRECT ROUTE OF DRUG ADMINISTRATION [None]
  - NO ADVERSE EFFECT [None]
